FAERS Safety Report 7573691-4 (Version None)
Quarter: 2011Q2

REPORT INFORMATION
  Report Type: 
  Country: None (occurrence: None)
  Receive Date: 20110627
  Receipt Date: 20110610
  Transmission Date: 20111010
  Serious: No
  Sender: FDA-Public Use
  Company Number: US-B.I. PHARMACEUTICALS,INC./RIDGEFIELD-2011-BP-15207BP

PATIENT
  Age: 63 Year
  Sex: Female

DRUGS (5)
  1. PRADAXA [Suspect]
     Indication: ATRIAL FIBRILLATION
     Dosage: 300 MG
     Route: 048
     Dates: start: 20110501
  2. POTASSIUM [Concomitant]
     Indication: MINERAL SUPPLEMENTATION
  3. ADVAIR DISKUS 100/50 [Concomitant]
     Indication: ASTHMA
  4. DIAZEPAM [Concomitant]
     Indication: ATRIAL FIBRILLATION
  5. VITAMIN TAB [Concomitant]
     Indication: PROPHYLAXIS

REACTIONS (1)
  - DYSGEUSIA [None]
